FAERS Safety Report 26081234 (Version 1)
Quarter: 2025Q4

REPORT INFORMATION
  Report Type: Spontaneous
  Country: GB (occurrence: GB)
  Receive Date: 20251124
  Receipt Date: 20251124
  Transmission Date: 20260118
  Serious: Yes (Other)
  Sender: ROCHE
  Company Number: GB-002147023-NVSC2025GB176674

PATIENT
  Age: 18 Year
  Sex: Male

DRUGS (3)
  1. OMALIZUMAB [Suspect]
     Active Substance: OMALIZUMAB
     Indication: Chronic spontaneous urticaria
     Dosage: 6 DOSAGE FORM, QMO (RECEIVED SIX DOSES OF OMALIZUMAB INFUSION)
     Route: 065
  2. MONTELUKAST [Concomitant]
     Active Substance: MONTELUKAST
     Indication: Chronic spontaneous urticaria
     Dosage: UNK
  3. PREDNISOLONE [Concomitant]
     Active Substance: PREDNISOLONE
     Indication: Product used for unknown indication
     Dosage: UNK (TWO-WEEK WEANING DOSE)
     Route: 048

REACTIONS (1)
  - Retinal pigment epitheliopathy [Recovered/Resolved]
